FAERS Safety Report 20063695 (Version 1)
Quarter: 2021Q4

REPORT INFORMATION
  Report Type: Spontaneous
  Country: US (occurrence: None)
  Receive Date: 20211112
  Receipt Date: 20211112
  Transmission Date: 20220303
  Serious: Yes (Disabling)
  Sender: FDA-Public Use
  Company Number: None

PATIENT
  Age: 32 Year
  Sex: Female
  Weight: 117 kg

DRUGS (7)
  1. CIMZIA [Suspect]
     Active Substance: CERTOLIZUMAB PEGOL
     Indication: Ankylosing spondylitis
     Route: 030
     Dates: start: 20210422, end: 20210422
  2. GASTRIC SLEEVE [Concomitant]
  3. COSENTYX [Concomitant]
     Active Substance: SECUKINUMAB
  4. UBRELVY [Concomitant]
     Active Substance: UBROGEPANT
  5. OMEPRAZOLE [Concomitant]
     Active Substance: OMEPRAZOLE
  6. ALBUTEROL [Concomitant]
     Active Substance: ALBUTEROL
  7. VITAMINS [Concomitant]
     Active Substance: VITAMINS

REACTIONS (10)
  - Eye pruritus [None]
  - Urticaria [None]
  - Heart rate increased [None]
  - Burning sensation [None]
  - Erythema [None]
  - Hypotension [None]
  - Arthralgia [None]
  - Arthralgia [None]
  - Pain in jaw [None]
  - Muscular weakness [None]

NARRATIVE: CASE EVENT DATE: 20210423
